FAERS Safety Report 7331571-3 (Version None)
Quarter: 2011Q1

REPORT INFORMATION
  Report Type: 
  Country: None (occurrence: None)
  Receive Date: 20110228
  Receipt Date: 20110228
  Transmission Date: 20110831
  Serious: Yes (Other)
  Sender: FDA-Public Use
  Company Number: None

PATIENT
  Age: 55 Year
  Sex: Male
  Weight: 101.7 kg

DRUGS (27)
  1. CLOTRIMAZOLE [Concomitant]
  2. SENOKOT [Concomitant]
  3. CHLORHEXIDINE RINSE [Concomitant]
  4. ADVAIR DISKUS 100/50 [Concomitant]
  5. NOVOLOG [Concomitant]
  6. PERCOCET [Concomitant]
  7. LORAZEPAM [Concomitant]
  8. DUONEB [Concomitant]
  9. ENOXAPARIN [Concomitant]
  10. MULTIVITAMIN W/MINERALS [Concomitant]
  11. HALOPERIDOL [Concomitant]
  12. ALBUTEROL [Concomitant]
  13. FAMOTIDINE [Concomitant]
  14. METOPROLOL [Concomitant]
  15. PREDNISONE [Concomitant]
  16. SPIRIVA [Concomitant]
  17. BUPROPION 100MG UDL [Suspect]
     Indication: SMOKING CESSATION THERAPY
     Dosage: 100MG TID OCCLUSIVE DRESSING
     Route: 046
     Dates: start: 20110211, end: 20110216
  18. BUPROPION 100MG UDL [Suspect]
  19. NICOTINE PATCH [Concomitant]
  20. MIRALAX [Concomitant]
  21. KETOROLAC [Concomitant]
  22. SCOPOLAMINE [Concomitant]
  23. ASCORBIC ACID [Concomitant]
  24. MOM [Concomitant]
  25. GLUCAGON [Concomitant]
  26. FENTANYL/BUPIVACAINE EPIDURAL [Concomitant]
  27. CEFUROXIME [Concomitant]

REACTIONS (3)
  - ASTERIXIS [None]
  - TREMOR [None]
  - BALLISMUS [None]
